FAERS Safety Report 19259987 (Version 3)
Quarter: 2022Q1

REPORT INFORMATION
  Report Type: Report from Study
  Country: CO (occurrence: CO)
  Receive Date: 20210514
  Receipt Date: 20220104
  Transmission Date: 20220423
  Serious: Yes (Death, Other)
  Sender: FDA-Public Use
  Company Number: CO-ASTELLAS-2021US005658

PATIENT
  Age: 85 Year
  Sex: Male

DRUGS (2)
  1. ENZALUTAMIDE [Suspect]
     Active Substance: ENZALUTAMIDE
     Indication: Hormone-refractory prostate cancer
     Dosage: 80 MG, EVERY 12 HOURS (2 CAP IN THE MORNING AND 2 CAP AT NIGHT)
     Route: 048
     Dates: start: 20210203
  2. ENZALUTAMIDE [Suspect]
     Active Substance: ENZALUTAMIDE
     Dosage: 80 MG, EVERY 12 HOURS (2 CAP IN THE MORNING AND 2 CAP IN THE EVENING)
     Route: 048
     Dates: start: 20210209

REACTIONS (5)
  - Death [Fatal]
  - Epilepsy [Not Recovered/Not Resolved]
  - Asthenia [Not Recovered/Not Resolved]
  - Arthralgia [Not Recovered/Not Resolved]
  - Off label use [Not Recovered/Not Resolved]

NARRATIVE: CASE EVENT DATE: 20210228
